FAERS Safety Report 23817713 (Version 1)
Quarter: 2024Q2

REPORT INFORMATION
  Report Type: Spontaneous
  Country: US (occurrence: US)
  Receive Date: 20240506
  Receipt Date: 20240506
  Transmission Date: 20240716
  Serious: Yes (Other)
  Sender: FDA-Public Use
  Company Number: US-HALEON-2170058

PATIENT

DRUGS (1)
  1. TUMS [Suspect]
     Active Substance: CALCIUM CARBONATE
     Indication: Product used for unknown indication

REACTIONS (4)
  - Choking [Not Recovered/Not Resolved]
  - Discomfort [Unknown]
  - Product use complaint [Unknown]
  - Retching [Not Recovered/Not Resolved]
